FAERS Safety Report 16196215 (Version 1)
Quarter: 2019Q2

REPORT INFORMATION
  Report Type: Spontaneous
  Country: US (occurrence: US)
  Receive Date: 20190415
  Receipt Date: 20190415
  Transmission Date: 20190711
  Serious: Yes (Death, Other)
  Sender: FDA-Public Use
  Company Number: US-SA-2019SA090509

PATIENT
  Sex: Male

DRUGS (1)
  1. ALDURAZYME [Suspect]
     Active Substance: LARONIDASE
     Dosage: UNK UNK, UNK
     Route: 042
     Dates: start: 2003

REACTIONS (2)
  - Death [Fatal]
  - Cardiopulmonary failure [Unknown]

NARRATIVE: CASE EVENT DATE: 20190329
